FAERS Safety Report 21596764 (Version 2)
Quarter: 2022Q4

REPORT INFORMATION
  Report Type: Report from Study
  Country: US (occurrence: US)
  Receive Date: 20221115
  Receipt Date: 20221125
  Transmission Date: 20230113
  Serious: No
  Sender: FDA-Public Use
  Company Number: US-ABBVIE-4200110

PATIENT
  Sex: Male

DRUGS (2)
  1. IMBRUVICA [Suspect]
     Active Substance: IBRUTINIB
     Indication: Chronic lymphocytic leukaemia
     Route: 048
     Dates: start: 20190724
  2. CALQUENCE [Suspect]
     Active Substance: ACALABRUTINIB
     Indication: Product used for unknown indication

REACTIONS (9)
  - Fatigue [Recovering/Resolving]
  - Limb discomfort [Unknown]
  - Nightmare [Unknown]
  - Myalgia [Recovering/Resolving]
  - Dry skin [Recovering/Resolving]
  - Muscle spasms [Recovering/Resolving]
  - Irritability [Unknown]
  - Obstruction [Unknown]
  - Memory impairment [Unknown]
